FAERS Safety Report 5419503-6 (Version None)
Quarter: 2007Q3

REPORT INFORMATION
  Report Type: 
  Country: None (occurrence: None)
  Receive Date: 20070817
  Receipt Date: 20070817
  Transmission Date: 20080115
  Serious: Yes (Life-Threatening)
  Sender: FDA-Public Use
  Company Number: None

PATIENT
  Age: 79 Year
  Sex: Female
  Weight: 49 kg

DRUGS (13)
  1. METFORMIN HCL [Suspect]
     Indication: DIABETES MELLITUS
     Dosage: 1000MG BID PO
     Route: 048
  2. CELEXA [Concomitant]
  3. DIGOXIN [Concomitant]
  4. IMDUR [Concomitant]
  5. ADVAIR DISKUS 100/50 [Concomitant]
  6. GLIPIZIDE [Concomitant]
  7. PRILOSEC [Concomitant]
  8. BUMEX [Concomitant]
  9. SYNTHROID [Concomitant]
  10. TOPROL-XL [Concomitant]
  11. MULTI-VITAMIN [Concomitant]
  12. COUMADIN [Concomitant]
  13. MACROBID [Concomitant]

REACTIONS (8)
  - ABDOMINAL PAIN [None]
  - ATRIOVENTRICULAR BLOCK FIRST DEGREE [None]
  - HYPOGLYCAEMIA [None]
  - PULMONARY CONGESTION [None]
  - RENAL FAILURE [None]
  - SOMNOLENCE [None]
  - SPLENIC ARTERY ANEURYSM [None]
  - URINARY TRACT INFECTION [None]
